FAERS Safety Report 14768397 (Version 1)
Quarter: 2018Q2

REPORT INFORMATION
  Report Type: Spontaneous
  Country: US (occurrence: US)
  Receive Date: 20180417
  Receipt Date: 20180417
  Transmission Date: 20180711
  Serious: No
  Sender: FDA-Public Use
  Company Number: US-CORCEPT THERAPEUTICS INC.-US-2017CRT000344

PATIENT

DRUGS (1)
  1. KORLYM [Suspect]
     Active Substance: MIFEPRISTONE
     Indication: HYPOTHALAMO-PITUITARY DISORDER
     Dosage: 900 MG, QD
     Route: 048
     Dates: start: 201702

REACTIONS (2)
  - Blood testosterone increased [Not Recovered/Not Resolved]
  - Platelet disorder [Not Recovered/Not Resolved]

NARRATIVE: CASE EVENT DATE: 2017
